FAERS Safety Report 5730275-8 (Version None)
Quarter: 2008Q2

REPORT INFORMATION
  Report Type: 
  Country: None (occurrence: None)
  Receive Date: 20080505
  Receipt Date: 20080505
  Transmission Date: 20081010
  Serious: Yes (Life-Threatening, Hospitalization)
  Sender: FDA-Public Use
  Company Number: None

PATIENT
  Sex: Female
  Weight: 65.7716 kg

DRUGS (2)
  1. DIGITEK [Suspect]
     Indication: ARRHYTHMIA
     Dosage: .25 MG DAILY PO
     Route: 048
     Dates: start: 20061203, end: 20061223
  2. DIGITEK [Suspect]
     Indication: POST PROCEDURAL COMPLICATION
     Dosage: .25 MG DAILY PO
     Route: 048
     Dates: start: 20061203, end: 20061223

REACTIONS (4)
  - ASTHENIA [None]
  - DEPRESSION [None]
  - NAUSEA [None]
  - THERAPEUTIC AGENT TOXICITY [None]
